FAERS Safety Report 19546641 (Version 2)
Quarter: 2025Q2

REPORT INFORMATION
  Report Type: Report from Study
  Country: ES (occurrence: ES)
  Receive Date: 20210715
  Receipt Date: 20250603
  Transmission Date: 20250717
  Serious: Yes (Other)
  Sender: AUROBINDO
  Company Number: ES-SUN PHARMACEUTICAL INDUSTRIES LTD-2021RR-302939

PATIENT
  Age: 72 Year
  Sex: Male

DRUGS (2)
  1. ERTAPENEM [Suspect]
     Active Substance: ERTAPENEM
     Indication: Anal abscess
     Dosage: 1 GRAM, ONCE A DAY
     Route: 065
  2. TEICOPLANIN [Suspect]
     Active Substance: TEICOPLANIN
     Indication: Anal abscess
     Route: 065

REACTIONS (6)
  - Depressed level of consciousness [Unknown]
  - Neurotoxicity [Unknown]
  - Coma [Unknown]
  - Respiratory failure [Unknown]
  - Epilepsy [Unknown]
  - Product use in unapproved indication [Unknown]
